FAERS Safety Report 14328659 (Version 4)
Quarter: 2021Q4

REPORT INFORMATION
  Report Type: Spontaneous
  Country: GB (occurrence: GB)
  Receive Date: 20171227
  Receipt Date: 20211022
  Transmission Date: 20220303
  Serious: Yes (Life-Threatening, Hospitalization, Other)
  Sender: FDA-Public Use
  Company Number: None

PATIENT

DRUGS (7)
  1. DEXAMETHASONE [Suspect]
     Active Substance: DEXAMETHASONE
     Indication: Nausea
     Dosage: 2 MG, TID
     Route: 048
     Dates: start: 20040311, end: 20040314
  2. DEXAMETHASONE [Suspect]
     Active Substance: DEXAMETHASONE
     Dosage: UNK
  3. CISPLATIN [Suspect]
     Active Substance: CISPLATIN
     Indication: Squamous cell carcinoma
     Dosage: 100 MG/M2, DRUG STILL BEING ADMINISTERED
     Route: 042
     Dates: start: 20040311
  4. CISPLATIN [Suspect]
     Active Substance: CISPLATIN
     Dosage: 200 MG
     Route: 065
  5. DICLOFENAC [Suspect]
     Active Substance: DICLOFENAC
     Indication: Pain
     Dosage: 50 MG, TID (150 MG, QD)
     Route: 048
     Dates: start: 20040304, end: 20040413
  6. DICLOFENAC [Suspect]
     Active Substance: DICLOFENAC
     Dosage: 50 MG, TID
     Route: 048
  7. LAPATINIB [Suspect]
     Active Substance: LAPATINIB
     Indication: Squamous cell carcinoma
     Dosage: 500 MG
     Route: 048
     Dates: start: 20040304, end: 20040313

REACTIONS (3)
  - Duodenal ulcer perforation [Recovered/Resolved]
  - Haematemesis [Unknown]
  - Abdominal pain [Unknown]

NARRATIVE: CASE EVENT DATE: 20040314
